FAERS Safety Report 13667791 (Version 1)
Quarter: 2017Q2

REPORT INFORMATION
  Report Type: Spontaneous
  Country: JP (occurrence: JP)
  Receive Date: 20170620
  Receipt Date: 20170620
  Transmission Date: 20170830
  Serious: Yes (Life-Threatening, Other)
  Sender: FDA-Public Use
  Company Number: JP-ACCORD-052646

PATIENT
  Age: 53 Year
  Sex: Female

DRUGS (8)
  1. DEXAMETHASONE. [Suspect]
     Active Substance: DEXAMETHASONE
     Indication: ANGIOCENTRIC LYMPHOMA
     Dosage: REDUCED-DOSE (67%)?REDUCED TO A HALF DOSE IN THE SECOND COURSE
  2. METHYLPREDNISOLONE. [Concomitant]
     Active Substance: METHYLPREDNISOLONE
     Indication: IMMUNOSUPPRESSANT DRUG THERAPY
  3. TACROLIMUS. [Suspect]
     Active Substance: TACROLIMUS
     Indication: IMMUNOSUPPRESSANT DRUG THERAPY
  4. METHOTREXATE. [Suspect]
     Active Substance: METHOTREXATE
     Indication: ANGIOCENTRIC LYMPHOMA
     Dosage: HIGH-DOSE?REDUCED TO A HALF DOSE IN THE SECOND COURSE
  5. ASPARAGINASE [Suspect]
     Active Substance: ASPARAGINASE
     Indication: ANGIOCENTRIC LYMPHOMA
     Dosage: REDUCED TO A HALF DOSE IN THE SECOND COURSE
  6. IFOSFAMIDE. [Suspect]
     Active Substance: IFOSFAMIDE
     Indication: ANGIOCENTRIC LYMPHOMA
     Dosage: REDUCED TO A HALF DOSE IN THE SECOND COURSE
  7. MYCOPHENOLIC ACID. [Suspect]
     Active Substance: MYCOPHENOLIC ACID
     Indication: IMMUNOSUPPRESSANT DRUG THERAPY
  8. ETOPOSIDE. [Suspect]
     Active Substance: ETOPOSIDE
     Indication: ANGIOCENTRIC LYMPHOMA
     Dosage: REDUCED TO A HALF DOSE IN THE SECOND COURSE

REACTIONS (6)
  - Pneumonia aspiration [Unknown]
  - Epstein-Barr virus infection [Unknown]
  - Diarrhoea [Unknown]
  - Angiocentric lymphoma [Unknown]
  - Bone marrow failure [Unknown]
  - Cytomegalovirus viraemia [Unknown]
